FAERS Safety Report 15693026 (Version 1)
Quarter: 2018Q4

REPORT INFORMATION
  Report Type: Spontaneous
  Country: US (occurrence: US)
  Receive Date: 20181206
  Receipt Date: 20181206
  Transmission Date: 20190205
  Serious: No
  Sender: FDA-Public Use
  Company Number: US-ASTRAZENECA-2018SF46579

PATIENT
  Sex: Female

DRUGS (1)
  1. SYMBICORT [Suspect]
     Active Substance: BUDESONIDE\FORMOTEROL FUMARATE DIHYDRATE
     Dosage: 160/4.5 MCG 60 COUNT INHALER,TWO PUFFS TWICE DAILY
     Route: 055
     Dates: start: 20181005

REACTIONS (3)
  - Wrong technique in device usage process [Unknown]
  - Oral candidiasis [Unknown]
  - Product dispensing error [Unknown]
